FAERS Safety Report 23225301 (Version 3)
Quarter: 2025Q2

REPORT INFORMATION
  Report Type: Spontaneous
  Country: JP (occurrence: JP)
  Receive Date: 20231124
  Receipt Date: 20250417
  Transmission Date: 20250717
  Serious: Yes (Other)
  Sender: TAKEDA
  Company Number: JP-OTSUKA-2023_030101AA

PATIENT
  Age: 62 Year
  Sex: Female

DRUGS (1)
  1. ICLUSIG [Suspect]
     Active Substance: PONATINIB HYDROCHLORIDE
     Indication: Chronic myeloid leukaemia
     Dosage: 15 MILLIGRAM, QD

REACTIONS (3)
  - Cerebral vascular occlusion [Unknown]
  - Moyamoya disease [Unknown]
  - Transient ischaemic attack [Recovered/Resolved]

NARRATIVE: CASE EVENT DATE: 20210101
